FAERS Safety Report 9450523 (Version 2)
Quarter: 2013Q3

REPORT INFORMATION
  Report Type: Report from Study
  Country: US (occurrence: US)
  Receive Date: 20130809
  Receipt Date: 20130819
  Transmission Date: 20140515
  Serious: Yes (Hospitalization, Other)
  Sender: FDA-Public Use
  Company Number: US-ASTELLAS-2013US008291

PATIENT
  Age: 81 Year
  Sex: Male

DRUGS (7)
  1. ERLOTINIB TABLET [Suspect]
     Indication: BRAIN NEOPLASM MALIGNANT
     Dosage: 2000 MG, WEEKLY
     Dates: start: 20130724
  2. ERLOTINIB TABLET [Suspect]
     Dosage: 1500 MG, WEEKLY
     Route: 048
     Dates: start: 20130807
  3. CEFADROXIL [Concomitant]
     Indication: PRODUCT USED FOR UNKNOWN INDICATION
     Dosage: 500 MG, BID
     Route: 065
  4. ACLOVATE [Concomitant]
     Indication: PRODUCT USED FOR UNKNOWN INDICATION
     Dosage: UNK
     Route: 061
  5. OLUX [Concomitant]
     Indication: PRODUCT USED FOR UNKNOWN INDICATION
     Dosage: UNK
     Route: 061
  6. APO-OFLOXACIN [Concomitant]
     Indication: PRODUCT USED FOR UNKNOWN INDICATION
     Dosage: 750 MG, UNKNOWN/D
     Route: 048
     Dates: end: 20130807
  7. APO FLUCONAZOLE [Concomitant]
     Indication: PRODUCT USED FOR UNKNOWN INDICATION
     Dosage: 100 MG, UID/QD
     Route: 065

REACTIONS (14)
  - Off label use [Unknown]
  - Tremor [Recovered/Resolved]
  - Tremor [Unknown]
  - Confusional state [Unknown]
  - Dehydration [None]
  - Vomiting [Recovered/Resolved]
  - Lung infection [Unknown]
  - Fatigue [Not Recovered/Not Resolved]
  - Nausea [Unknown]
  - Vomiting [Unknown]
  - Pleural effusion [Unknown]
  - Dermatitis acneiform [Unknown]
  - Asthenia [Unknown]
  - Lethargy [Unknown]
